FAERS Safety Report 19196057 (Version 1)
Quarter: 2021Q2

REPORT INFORMATION
  Report Type: Report from Study
  Country: US (occurrence: US)
  Receive Date: 20210429
  Receipt Date: 20210429
  Transmission Date: 20210717
  Serious: Yes (Other)
  Sender: FDA-Public Use
  Company Number: US-JAZZ-2021-US-007522

PATIENT
  Age: 47 Year
  Sex: Female

DRUGS (1)
  1. XYREM [Suspect]
     Active Substance: SODIUM OXYBATE
     Indication: NARCOLEPSY
     Dosage: UNKNOWN DOSE
     Route: 048
     Dates: start: 2018

REACTIONS (6)
  - Surgery [Unknown]
  - Sodium retention [Unknown]
  - Condition aggravated [Unknown]
  - Stress [Unknown]
  - Somnambulism [Unknown]
  - Systemic lupus erythematosus [Unknown]
